FAERS Safety Report 8359404-7 (Version None)
Quarter: 2012Q2

REPORT INFORMATION
  Report Type: 
  Country: None (occurrence: None)
  Receive Date: 20120514
  Receipt Date: 20120514
  Transmission Date: 20120825
  Serious: Yes (Other)
  Sender: FDA-Public Use
  Company Number: None

PATIENT
  Age: 48 Year
  Sex: Female
  Weight: 56.6996 kg

DRUGS (1)
  1. SINGULAIR [Suspect]
     Indication: SEASONAL ALLERGY
     Dosage: 1 TABLET DAILY IN THE EVENI PO
     Route: 048
     Dates: start: 20120201, end: 20120506

REACTIONS (6)
  - PRURITUS [None]
  - HYPOAESTHESIA [None]
  - EAR PAIN [None]
  - ERYTHEMA [None]
  - SKIN SWELLING [None]
  - PARAESTHESIA [None]
